FAERS Safety Report 4751802-3 (Version None)
Quarter: 2005Q3

REPORT INFORMATION
  Report Type: 
  Country: None (occurrence: None)
  Receive Date: 20050819
  Receipt Date: 20040817
  Transmission Date: 20060218
  Serious: Yes (Life-Threatening)
  Sender: FDA-Public Use
  Company Number: 238694

PATIENT
  Age: 80 Year
  Sex: Female
  Weight: 102 kg

DRUGS (1)
  1. NOVOLIN N [Suspect]
     Indication: INSULIN-REQUIRING TYPE II DIABETES MELLITUS
     Dosage: 35 IU, QD, SUBCUTANEOUS
     Route: 058
     Dates: start: 19890101

REACTIONS (1)
  - HYPOGLYCAEMIC COMA [None]
